FAERS Safety Report 25573448 (Version 1)
Quarter: 2025Q3

REPORT INFORMATION
  Report Type: Spontaneous
  Country: US (occurrence: None)
  Receive Date: 20250716
  Receipt Date: 20250716
  Transmission Date: 20251021
  Serious: Yes (Life-Threatening, Hospitalization)
  Sender: FDA-CTU
  Company Number: None

PATIENT
  Age: 59 Year
  Sex: Female
  Weight: 113 kg

DRUGS (1)
  1. CEFTRIAXONE [Suspect]
     Active Substance: CEFTRIAXONE
     Indication: Urinary tract infection
     Route: 042
     Dates: start: 20250712, end: 20250712

REACTIONS (26)
  - Unresponsive to stimuli [None]
  - Agonal respiration [None]
  - Hypokalaemia [None]
  - Blood glucose decreased [None]
  - Pericardial effusion [None]
  - Arteriosclerosis coronary artery [None]
  - Pleural effusion [None]
  - Atelectasis [None]
  - Hepatic steatosis [None]
  - Hepatic cirrhosis [None]
  - Ascites [None]
  - Splenic cyst [None]
  - Pancreatitis [None]
  - Gastrointestinal wall thickening [None]
  - Gastroenteritis [None]
  - Colitis [None]
  - Hiatus hernia [None]
  - Generalised oedema [None]
  - Varices oesophageal [None]
  - Gastritis [None]
  - Deep vein thrombosis [None]
  - Ejection fraction decreased [None]
  - Abnormal loss of weight [None]
  - Clostridium difficile infection [None]
  - Acquired diaphragmatic eventration [None]
  - Pancreatic steatosis [None]

NARRATIVE: CASE EVENT DATE: 20250712
